FAERS Safety Report 8958952 (Version 1)
Quarter: 2012Q4

REPORT INFORMATION
  Report Type: 
  Country: US (occurrence: US)
  Receive Date: 20121212
  Receipt Date: 20121212
  Transmission Date: 20130627
  Serious: No
  Sender: FDA-Public Use
  Company Number: US-BIOGENIDEC-2012BI056644

PATIENT
  Age: 62 Year
  Sex: Female

DRUGS (2)
  1. AVONEX [Suspect]
     Indication: MULTIPLE SCLEROSIS
     Route: 030
     Dates: start: 20040930, end: 20110903
  2. AVONEX [Suspect]
     Indication: MULTIPLE SCLEROSIS
     Route: 030
     Dates: start: 20111111

REACTIONS (3)
  - Feeling cold [Not Recovered/Not Resolved]
  - Adverse event [Not Recovered/Not Resolved]
  - Pain [Not Recovered/Not Resolved]
